FAERS Safety Report 15165840 (Version 1)
Quarter: 2018Q3

REPORT INFORMATION
  Report Type: Spontaneous
  Country: US (occurrence: US)
  Receive Date: 20180621
  Receipt Date: 20180621
  Transmission Date: 20181010
  Serious: Yes (Hospitalization)
  Sender: FDA-Public Use
  Company Number: None

PATIENT
  Age: 64 Year
  Sex: Male
  Weight: 63.6 kg

DRUGS (1)
  1. FERRIC NA GLUCONATE [Suspect]
     Active Substance: SODIUM FERRIC GLUCONATE COMPLEX
     Indication: ANAEMIA
     Route: 042
     Dates: start: 20180619, end: 20180620

REACTIONS (5)
  - Tachypnoea [None]
  - Dyspnoea [None]
  - Infusion related reaction [None]
  - Tachycardia [None]
  - Pulmonary oedema [None]

NARRATIVE: CASE EVENT DATE: 20180620
